FAERS Safety Report 14924017 (Version 3)
Quarter: 2018Q4

REPORT INFORMATION
  Report Type: Report from Study
  Country: JP (occurrence: JP)
  Receive Date: 20180522
  Receipt Date: 20181119
  Transmission Date: 20190204
  Serious: Yes (Death, Other)
  Sender: FDA-Public Use
  Company Number: JP-009507513-1805JPN001532J

PATIENT
  Age: 70 Year
  Sex: Male
  Weight: 42 kg

DRUGS (4)
  1. LOXOPROFEN SODIUM HYDRATE [Concomitant]
     Active Substance: LOXOPROFEN SODIUM DIHYDRATE
     Dosage: 3 DOSAGE FORM, TID
     Route: 048
     Dates: start: 20180323
  2. REBAMIPIDE [Concomitant]
     Active Substance: REBAMIPIDE
     Dosage: 3 DOSAGE FORM, TID
     Route: 048
     Dates: start: 20180323
  3. KEYTRUDA [Suspect]
     Active Substance: PEMBROLIZUMAB
     Indication: TRANSITIONAL CELL CARCINOMA
     Dosage: 200 MG, UNK
     Route: 041
     Dates: start: 20180214, end: 20180328
  4. SILECE [Concomitant]
     Active Substance: FLUNITRAZEPAM
     Dosage: 1 DOSAGE FORM, QD
     Route: 048
     Dates: start: 20180323

REACTIONS (1)
  - Malignant neoplasm progression [Fatal]

NARRATIVE: CASE EVENT DATE: 20180427
